FAERS Safety Report 21326727 (Version 1)
Quarter: 2022Q3

REPORT INFORMATION
  Report Type: Other
  Country: CN (occurrence: None)
  Receive Date: 20220913
  Receipt Date: 20220913
  Transmission Date: 20221027
  Serious: Yes (Death)
  Sender: FDA-Public Use
  Company Number: CN-ROCHE-3174074

PATIENT
  Age: 40 Year
  Sex: Male

DRUGS (3)
  1. BEVACIZUMAB [Suspect]
     Active Substance: BEVACIZUMAB
     Indication: NUT midline carcinoma
     Route: 042
     Dates: start: 20181018
  2. PACLITAXEL [Suspect]
     Active Substance: PACLITAXEL
     Indication: NUT midline carcinoma
     Route: 042
     Dates: start: 20181019
  3. CATEQUENTINIB [Concomitant]
     Active Substance: CATEQUENTINIB
     Dosage: QD
     Route: 048
     Dates: start: 20181013

REACTIONS (2)
  - Disease progression [Fatal]
  - Drug ineffective [Unknown]
